FAERS Safety Report 5021792-7 (Version None)
Quarter: 2006Q2

REPORT INFORMATION
  Report Type: 
  Country: None (occurrence: None)
  Receive Date: 20060605
  Receipt Date: 20060519
  Transmission Date: 20061013
  Serious: Yes (Death, Other)
  Sender: FDA-Public Use
  Company Number: US-2006-012738

PATIENT
  Age: 14 Year
  Sex: Female

DRUGS (8)
  1. FLUDARA [Suspect]
     Indication: CONGENITAL APLASTIC ANAEMIA
     Dosage: SEE IMAGE
     Route: 042
  2. CYTARABINE [Suspect]
     Indication: CONGENITAL APLASTIC ANAEMIA
     Dosage: 300MG/M2  D2-4 (FLAG), INTRAVENOUS
     Route: 042
  3. G-CSF           (GRANULOCYTE [Suspect]
     Dosage: 5UG/KG DAYS 1-5 (FLAG); POST TRANSPLANT D+5, ANC}2003X3
  4. CYCLOPHOSPHAMIDE [Suspect]
     Dosage: 10 MG/KG D-5 TO D-2, INTRAVENOUS
     Route: 042
  5. ATGAM [Suspect]
     Indication: PROPHYLAXIS AGAINST TRANSPLANT REJECTION
     Dosage: 30MG/KG D-6 TO D-3
  6. METHYLPREDNISOLONE [Suspect]
     Indication: PROPHYLAXIS AGAINST TRANSPLANT REJECTION
  7. ANTIINFECTIVES [Concomitant]
  8. AMPHOTERICINE B, LIPOSOME             (AMPHOTERICIN B, LIPSOME) [Concomitant]

REACTIONS (3)
  - ADENOVIRUS INFECTION [None]
  - MUCOSAL INFLAMMATION [None]
  - TRANSPLANT REJECTION [None]
